FAERS Safety Report 6901034-5 (Version None)
Quarter: 2010Q3

REPORT INFORMATION
  Report Type: 
  Country: None (occurrence: None)
  Receive Date: 20100803
  Receipt Date: 20100720
  Transmission Date: 20110219
  Serious: Yes (Other)
  Sender: FDA-Public Use
  Company Number: PHEH2007US12144

PATIENT
  Sex: Female

DRUGS (20)
  1. ZOMETA [Suspect]
  2. ZOMETA [Suspect]
  3. SYNTHROID [Concomitant]
  4. ALEVE (CAPLET) [Concomitant]
  5. TYLENOL [Concomitant]
  6. BENADRYL [Concomitant]
  7. BACTRIM [Concomitant]
  8. FASLODEX [Concomitant]
  9. CYCLOPHOSPHAMIDE [Concomitant]
  10. TAMOXIFEN CITRATE [Concomitant]
  11. HERCEPTIN [Concomitant]
  12. CLINDAMYCIN [Concomitant]
  13. FLAGYL [Concomitant]
  14. COUMADIN [Concomitant]
  15. FEMARA [Concomitant]
  16. MIRALAX [Concomitant]
  17. POTASSIUM CHLORIDE [Concomitant]
  18. PREDNISONE [Concomitant]
  19. LEVOTHYROXINE SODIUM [Concomitant]
  20. ATROVENT [Concomitant]

REACTIONS (52)
  - ABSCESS JAW [None]
  - ACTIVITIES OF DAILY LIVING IMPAIRED [None]
  - ALOPECIA [None]
  - ANAEMIA [None]
  - ASTHENIA [None]
  - BALANCE DISORDER [None]
  - BONE LESION [None]
  - CELLULITIS [None]
  - CENTRAL NERVOUS SYSTEM LESION [None]
  - CHRONIC OBSTRUCTIVE PULMONARY DISEASE [None]
  - COAGULOPATHY [None]
  - COGNITIVE DISORDER [None]
  - CONDITION AGGRAVATED [None]
  - CONFUSIONAL STATE [None]
  - DEFORMITY [None]
  - DYSPNOEA EXERTIONAL [None]
  - FAECAL INCONTINENCE [None]
  - FEMORAL NECK FRACTURE [None]
  - GOITRE [None]
  - HYPOKALAEMIA [None]
  - HYPOPHAGIA [None]
  - INFECTION [None]
  - IRON DEFICIENCY [None]
  - MALIGNANT NEOPLASM PROGRESSION [None]
  - METASTASES TO BONE [None]
  - METASTASES TO CENTRAL NERVOUS SYSTEM [None]
  - MICROCYTOSIS [None]
  - NAUSEA [None]
  - NECK PAIN [None]
  - OEDEMA [None]
  - OEDEMA PERIPHERAL [None]
  - ORAL PAIN [None]
  - OSTEOMYELITIS [None]
  - OSTEONECROSIS OF JAW [None]
  - OXYGEN SUPPLEMENTATION [None]
  - PAIN IN JAW [None]
  - PEPTIC ULCER [None]
  - PLEURAL EFFUSION [None]
  - PLEURAL FIBROSIS [None]
  - PNEUMONIA [None]
  - PRIMARY SEQUESTRUM [None]
  - PRODUCTIVE COUGH [None]
  - PROTHROMBIN TIME PROLONGED [None]
  - PYREXIA [None]
  - SCOLIOSIS [None]
  - SINUSITIS [None]
  - SKIN FRAGILITY [None]
  - UPPER GASTROINTESTINAL HAEMORRHAGE [None]
  - URINARY INCONTINENCE [None]
  - URINARY TRACT INFECTION [None]
  - VOMITING [None]
  - WEIGHT DECREASED [None]
